FAERS Safety Report 25553295 (Version 2)
Quarter: 2025Q3

REPORT INFORMATION
  Report Type: Report from Study
  Country: CA (occurrence: CA)
  Receive Date: 20250715
  Receipt Date: 20250820
  Transmission Date: 20251020
  Serious: Yes (Hospitalization, Other)
  Sender: Alvotech
  Company Number: CA-JAMP PHARMA CORPORATION-2025-JAM-CA-01140

PATIENT
  Age: 43 Year
  Sex: Male

DRUGS (2)
  1. SIMLANDI [Suspect]
     Active Substance: ADALIMUMAB-RYVK
     Indication: Crohn^s disease
     Dosage: 40 MG,WEEKLY
     Route: 058
     Dates: start: 20250508
  2. SIMLANDI [Suspect]
     Active Substance: ADALIMUMAB-RYVK
     Indication: Crohn^s disease
     Dosage: 40 MG,WEEKLY
     Route: 058
     Dates: start: 20231205, end: 2025

REACTIONS (4)
  - Hospitalisation [Recovered/Resolved]
  - Pneumonia [Recovering/Resolving]
  - Diarrhoea [Unknown]
  - Productive cough [Not Recovered/Not Resolved]
